FAERS Safety Report 15066766 (Version 1)
Quarter: 2018Q2

REPORT INFORMATION
  Report Type: Spontaneous
  Country: US (occurrence: US)
  Receive Date: 20180606
  Receipt Date: 20180606
  Transmission Date: 20180711
  Serious: No
  Sender: FDA-Public Use
  Company Number: None

PATIENT
  Sex: Female

DRUGS (1)
  1. HUMIRA [Suspect]
     Active Substance: ADALIMUMAB
     Indication: CROHN^S DISEASE
     Route: 058

REACTIONS (8)
  - Vulvovaginal erythema [None]
  - Vulvovaginal swelling [None]
  - Nausea [None]
  - Injection site erythema [None]
  - Urticaria [None]
  - Headache [None]
  - Injection site swelling [None]
  - Pruritus [None]
